FAERS Safety Report 4823542-3 (Version None)
Quarter: 2005Q4

REPORT INFORMATION
  Report Type: 
  Country: None (occurrence: None)
  Receive Date: 20051107
  Receipt Date: 20051024
  Transmission Date: 20060501
  Serious: Yes (Other)
  Sender: FDA-Public Use
  Company Number: 2005BH002584

PATIENT

DRUGS (1)
  1. OSMITROL 10% IN WATER [Suspect]
     Dosage: 1 L; EVERY HR; IVBOL
     Route: 040

REACTIONS (1)
  - RENAL FAILURE ACUTE [None]
